FAERS Safety Report 9342295 (Version 2)
Quarter: 2013Q3

REPORT INFORMATION
  Report Type: Spontaneous
  Country: JP (occurrence: JP)
  Receive Date: 20130611
  Receipt Date: 20130903
  Transmission Date: 20140515
  Serious: Yes (Other)
  Sender: FDA-Public Use
  Company Number: PHHY2013JP057890

PATIENT
  Age: 59 Year
  Sex: Female

DRUGS (4)
  1. FEMARA [Suspect]
     Indication: BREAST CANCER
     Dosage: 2.5 MG, DAILY
     Route: 048
     Dates: start: 2010
  2. ADALAT [Concomitant]
     Dosage: 40 MG, UNK
     Route: 048
  3. RISPERIDONE [Concomitant]
     Dosage: 2 MG, UNK
     Route: 048
  4. GLIMICRON [Concomitant]
     Dosage: 20 MG, UNK
     Route: 048

REACTIONS (2)
  - Chest discomfort [Unknown]
  - Embolism [Unknown]
